FAERS Safety Report 14675782 (Version 1)
Quarter: 2018Q1

REPORT INFORMATION
  Report Type: Spontaneous
  Country: PH (occurrence: PH)
  Receive Date: 20180323
  Receipt Date: 20180323
  Transmission Date: 20180509
  Serious: Yes (Disabling)
  Sender: FDA-Public Use
  Company Number: None

PATIENT
  Age: 51 Year
  Sex: Female
  Weight: 75 kg

DRUGS (4)
  1. LUPRON [Suspect]
     Active Substance: LEUPROLIDE ACETATE
     Indication: ENDOMETRIOSIS
     Dosage: QUANTITY:2 INJECTION(S);OTHER FREQUENCY:ONCE EVERY 3 MONT;?
     Route: 030
     Dates: start: 20161027, end: 20170117
  2. MULTIVITAMINS [Concomitant]
     Active Substance: VITAMINS
  3. LUPRON [Suspect]
     Active Substance: LEUPROLIDE ACETATE
     Indication: OVARIAN CYST
     Dosage: QUANTITY:2 INJECTION(S);OTHER FREQUENCY:ONCE EVERY 3 MONT;?
     Route: 030
     Dates: start: 20161027, end: 20170117
  4. IRON [Concomitant]
     Active Substance: IRON

REACTIONS (8)
  - Influenza like illness [None]
  - Limb discomfort [None]
  - Stress [None]
  - Bone pain [None]
  - Fatigue [None]
  - Insomnia [None]
  - Pain in extremity [None]
  - Musculoskeletal chest pain [None]

NARRATIVE: CASE EVENT DATE: 20161027
